FAERS Safety Report 25765664 (Version 1)
Quarter: 2025Q3

REPORT INFORMATION
  Report Type: Spontaneous
  Country: CN (occurrence: CN)
  Receive Date: 20250905
  Receipt Date: 20250905
  Transmission Date: 20251020
  Serious: Yes (Hospitalization, Other)
  Sender: BAXTER
  Company Number: None

PATIENT
  Age: 8 Year
  Sex: Female
  Weight: 28.3 kg

DRUGS (12)
  1. CYCLOPHOSPHAMIDE [Suspect]
     Active Substance: CYCLOPHOSPHAMIDE
     Indication: Anaplastic large cell lymphoma T- and null-cell types
     Dosage: 200 MG, QD
     Route: 041
     Dates: start: 20250724, end: 20250725
  2. CYCLOPHOSPHAMIDE [Suspect]
     Active Substance: CYCLOPHOSPHAMIDE
     Indication: Neck mass
  3. METHOTREXATE [Suspect]
     Active Substance: METHOTREXATE
     Indication: Anaplastic large cell lymphoma T- and null-cell types
     Dosage: 5000 MG, QD
     Route: 041
     Dates: start: 20250728, end: 20250828
  4. METHOTREXATE [Suspect]
     Active Substance: METHOTREXATE
     Indication: Neck mass
  5. ETOPOSIDE [Suspect]
     Active Substance: ETOPOSIDE
     Indication: Anaplastic large cell lymphoma T- and null-cell types
     Dosage: 0.111 G, QD
     Route: 041
     Dates: start: 20250731, end: 20250801
  6. ETOPOSIDE [Suspect]
     Active Substance: ETOPOSIDE
     Indication: Neck mass
  7. IFOSFAMIDE [Suspect]
     Active Substance: IFOSFAMIDE
     Indication: Anaplastic large cell lymphoma T- and null-cell types
     Dosage: 0.8 G, QD
     Route: 041
     Dates: start: 20250728, end: 20250801
  8. IFOSFAMIDE [Suspect]
     Active Substance: IFOSFAMIDE
     Indication: Neck mass
  9. VINCRISTINE SULFATE [Suspect]
     Active Substance: VINCRISTINE SULFATE
     Indication: Anaplastic large cell lymphoma T- and null-cell types
     Dosage: 1.5 MG, QD, (INJECTION,LYOPHILIZED POWDER)
     Route: 042
     Dates: start: 20250728, end: 20250728
  10. VINCRISTINE SULFATE [Suspect]
     Active Substance: VINCRISTINE SULFATE
     Indication: Neck mass
  11. CYTARABINE [Suspect]
     Active Substance: CYTARABINE
     Indication: Anaplastic large cell lymphoma T- and null-cell types
     Dosage: 0.166 G, BID
     Route: 041
     Dates: start: 20250731, end: 20250801
  12. CYTARABINE [Suspect]
     Active Substance: CYTARABINE
     Indication: Neck mass

REACTIONS (6)
  - Mouth ulceration [Unknown]
  - Myelosuppression [Recovering/Resolving]
  - Full blood count decreased [Recovering/Resolving]
  - Thrombocytopenia [Recovering/Resolving]
  - Anaemia [Recovering/Resolving]
  - Agranulocytosis [Recovering/Resolving]

NARRATIVE: CASE EVENT DATE: 20250809
